FAERS Safety Report 5615821-7 (Version None)
Quarter: 2008Q1

REPORT INFORMATION
  Report Type: 
  Country: None (occurrence: None)
  Receive Date: 20080206
  Receipt Date: 20080122
  Transmission Date: 20080703
  Serious: Yes (Hospitalization)
  Sender: FDA-Public Use
  Company Number: JP-SANOFI-SYNTHELABO-A01200713797

PATIENT
  Age: 39 Year
  Sex: Female

DRUGS (24)
  1. LAMISIL [Suspect]
     Indication: FUNGAL SKIN INFECTION
     Route: 048
     Dates: start: 20071024, end: 20071025
  2. POLARAMINE [Suspect]
     Indication: PRURITUS
     Route: 048
     Dates: start: 20071016, end: 20071026
  3. MUCOSTA [Concomitant]
     Indication: GASTRITIS
     Dosage: 100 MG BID OR TID
     Route: 048
     Dates: start: 20071001, end: 20071027
  4. TOLEDOMIN [Concomitant]
     Indication: INSOMNIA
     Route: 048
     Dates: start: 20071001
  5. TOLEDOMIN [Concomitant]
     Indication: DEPRESSION
     Route: 048
     Dates: start: 20071001
  6. SEPAZON [Concomitant]
     Indication: INSOMNIA
     Route: 048
     Dates: start: 20061001
  7. SEPAZON [Concomitant]
     Indication: DEPRESSION
     Route: 048
     Dates: start: 20061001
  8. SILECE [Concomitant]
     Indication: INSOMNIA
     Dosage: 2 MG QD TO QID
     Route: 048
     Dates: start: 20060901
  9. SILECE [Concomitant]
     Indication: DEPRESSION
     Dosage: 2 MG QD TO QID
     Route: 048
     Dates: start: 20060901
  10. SEROQUEL [Concomitant]
     Indication: INSOMNIA
     Dosage: 100 MG
     Route: 048
     Dates: start: 20061001
  11. SEROQUEL [Concomitant]
     Indication: DEPRESSION
     Dosage: 100 MG
     Route: 048
     Dates: start: 20061001
  12. HALCION [Concomitant]
     Indication: INSOMNIA
     Dosage: 0.25 MG QD TO QID
     Route: 048
     Dates: start: 20060201
  13. HALCION [Concomitant]
     Indication: DEPRESSION
     Dosage: 0.25 MG QD TO QID
     Route: 048
     Dates: start: 20060201
  14. ATARAX [Suspect]
     Indication: PRURITUS
     Dosage: 25 MG QD OR BID
     Route: 042
     Dates: start: 20071022, end: 20071028
  15. THEO-DUR [Concomitant]
     Indication: ASTHMA
     Route: 048
     Dates: start: 20061201
  16. BLOPRESS [Concomitant]
     Indication: HYPERTENSION
     Dosage: 4 MG
     Route: 048
     Dates: start: 20050201
  17. EBASTEL [Concomitant]
     Indication: ASTHMA
     Dosage: 10 MG
     Route: 048
     Dates: start: 20051201
  18. FAMOSTAGINE D [Concomitant]
     Indication: GASTRITIS
     Route: 048
     Dates: start: 20041201
  19. BEZATOL SR [Concomitant]
     Indication: HYPERLIPIDAEMIA
     Route: 048
     Dates: start: 20060901
  20. PREDONINE [Concomitant]
     Indication: DERMATITIS EXFOLIATIVE
     Dosage: 5 TO 20 MG QD OR BID
     Route: 048
     Dates: start: 20071023, end: 20071030
  21. CRAVIT [Suspect]
     Indication: CYSTITIS
     Route: 048
     Dates: start: 20071022, end: 20071026
  22. VOLTAREN [Suspect]
     Indication: DERMATITIS
     Route: 048
     Dates: start: 20071001, end: 20071029
  23. PENTAGIN [Suspect]
     Indication: DERMATITIS
     Dosage: 15 MG ONCE OR TWICE DAILY
     Route: 040
     Dates: start: 20071023, end: 20071029
  24. PENTAGIN [Suspect]
     Indication: PAIN
     Dosage: 15 MG ONCE OR TWICE DAILY
     Route: 040
     Dates: start: 20071023, end: 20071029

REACTIONS (2)
  - HEPATIC FUNCTION ABNORMAL [None]
  - RENAL IMPAIRMENT [None]
